FAERS Safety Report 20584061 (Version 2)
Quarter: 2022Q1

REPORT INFORMATION
  Report Type: Report from Study
  Country: FR (occurrence: FR)
  Receive Date: 20220311
  Receipt Date: 20220316
  Transmission Date: 20220423
  Serious: Yes (Hospitalization)
  Sender: FDA-Public Use
  Company Number: FR-CELGENE-FRA-20220302265

PATIENT
  Age: 43 Year
  Sex: Male

DRUGS (8)
  1. REVLIMID [Suspect]
     Active Substance: LENALIDOMIDE
     Indication: Plasma cell myeloma
     Route: 048
     Dates: start: 20210407, end: 20211107
  2. REVLIMID [Suspect]
     Active Substance: LENALIDOMIDE
     Route: 048
     Dates: start: 20220207, end: 20220227
  3. KYPROLIS [Suspect]
     Active Substance: CARFILZOMIB
     Indication: Plasma cell myeloma
     Route: 065
     Dates: start: 20210407, end: 20211103
  4. KYPROLIS [Suspect]
     Active Substance: CARFILZOMIB
     Dosage: C7 CONSOLIDATION DAY 1 (20 MG/M^2) =37,8 MG , D8 AND D15 56 MG/M^2=106 MG
     Route: 042
     Dates: start: 20220207, end: 20220221
  5. DARZALEX [Suspect]
     Active Substance: DARATUMUMAB
     Indication: Plasma cell myeloma
     Route: 042
     Dates: start: 20210407, end: 20211102
  6. DARZALEX [Suspect]
     Active Substance: DARATUMUMAB
     Dosage: C7 CONSOLIDATION DAYS 1 AND 15= 16 MG/KG
     Route: 042
     Dates: start: 20220207, end: 20220221
  7. DEXAMETHASONE [Suspect]
     Active Substance: DEXAMETHASONE
     Indication: Product used for unknown indication
     Route: 048
     Dates: start: 20210407, end: 20211109
  8. DEXAMETHASONE [Suspect]
     Active Substance: DEXAMETHASONE
     Dosage: C7 CONSOLIDATION DAYS 1-8-15-22
     Route: 048
     Dates: start: 20220207, end: 20220228

REACTIONS (1)
  - Pneumonia influenzal [Recovered/Resolved]

NARRATIVE: CASE EVENT DATE: 20220305
